FAERS Safety Report 6463489-2 (Version None)
Quarter: 2009Q4

REPORT INFORMATION
  Report Type: 
  Country: None (occurrence: None)
  Receive Date: 20091201
  Receipt Date: 20091124
  Transmission Date: 20100525
  Serious: Yes (Hospitalization)
  Sender: FDA-Public Use
  Company Number: AT-BIOGENIDEC-2009BI035452

PATIENT
  Age: 38 Year
  Sex: Male

DRUGS (2)
  1. TYSABRI [Suspect]
     Indication: MULTIPLE SCLEROSIS
     Route: 042
     Dates: start: 20090817, end: 20090914
  2. TYSABRI [Suspect]
     Route: 042
     Dates: start: 20091023

REACTIONS (3)
  - DEEP VEIN THROMBOSIS [None]
  - MUSCLE SPASTICITY [None]
  - PULMONARY EMBOLISM [None]
